FAERS Safety Report 16245439 (Version 1)
Quarter: 2019Q2

REPORT INFORMATION
  Report Type: Spontaneous
  Country: US (occurrence: US)
  Receive Date: 20190426
  Receipt Date: 20190426
  Transmission Date: 20190711
  Serious: Yes (Other)
  Sender: FDA-Public Use
  Company Number: US-SA-2019SA113051

PATIENT
  Age: 73 Year
  Sex: Female

DRUGS (1)
  1. LANTUS [Suspect]
     Active Substance: INSULIN GLARGINE
     Indication: TYPE 2 DIABETES MELLITUS
     Dosage: 35 U, HS
     Route: 065

REACTIONS (5)
  - Product dose omission [Unknown]
  - Device operational issue [Unknown]
  - Cataract [Unknown]
  - Product use complaint [Unknown]
  - Arthritis [Unknown]
